FAERS Safety Report 8522485-1 (Version None)
Quarter: 2012Q3

REPORT INFORMATION
  Report Type: 
  Country: None (occurrence: None)
  Receive Date: 20120719
  Receipt Date: 20120716
  Transmission Date: 20120928
  Serious: Yes (Hospitalization)
  Sender: FDA-Public Use
  Company Number: US-ELI_LILLY_AND_COMPANY-US201206001639

PATIENT
  Sex: Male
  Weight: 98.866 kg

DRUGS (1)
  1. EFFIENT [Suspect]
     Dosage: UNK
     Dates: start: 20111220, end: 20120312

REACTIONS (2)
  - PERICARDITIS [None]
  - PERICARDIAL EFFUSION [None]
